FAERS Safety Report 8176552-5 (Version None)
Quarter: 2012Q1

REPORT INFORMATION
  Report Type: 
  Country: None (occurrence: None)
  Receive Date: 20120301
  Receipt Date: 20120223
  Transmission Date: 20120608
  Serious: Yes (Other)
  Sender: FDA-Public Use
  Company Number: US-BAYER-2011-044845

PATIENT
  Age: 36 Year
  Sex: Female
  Weight: 80 kg

DRUGS (26)
  1. ATIVAN [Concomitant]
     Indication: ANXIETY
  2. PRILOSEC [Concomitant]
     Indication: GASTROOESOPHAGEAL REFLUX DISEASE
     Dosage: UNK
     Dates: start: 20060101
  3. ATENOLOL [Concomitant]
     Indication: HYPERTENSION
     Dosage: 25 MG, UNK
     Dates: start: 20090611
  4. SUCRALFATE [Concomitant]
     Indication: SLEEP DISORDER
     Dosage: UNK
     Dates: start: 20060101
  5. LEVOXYL [Concomitant]
  6. PROMETHAZINE [Concomitant]
  7. ANTACIDS [Concomitant]
     Indication: OESOPHAGEAL DISORDER
  8. LEVOTHYROXINE SODIUM [Concomitant]
     Indication: HYPOTHYROIDISM
     Dosage: UNK
     Dates: start: 20060101
  9. ATIVAN [Concomitant]
     Indication: DEPRESSION
     Dosage: 2.5 MG, UNK
     Dates: start: 20060101
  10. CARAFATE [Concomitant]
     Indication: DYSPEPSIA
  11. YAZ [Suspect]
     Indication: MENSTRUATION IRREGULAR
  12. DARVOCET [Concomitant]
     Indication: HEADACHE
     Dosage: UNK UNK, PRN
     Dates: start: 20090611
  13. METFORMIN HCL [Concomitant]
     Indication: DIABETES MELLITUS
     Dosage: 500 MG, UNK
     Dates: start: 20060101
  14. NEXIUM [Concomitant]
  15. METOCLOPRAMIDE [Concomitant]
  16. TRAZODONE HCL [Concomitant]
     Indication: DEPRESSION
     Dosage: UNK
     Dates: start: 20060101
  17. TRAZODONE HCL [Concomitant]
     Indication: ANXIETY
  18. ZANTAC [Concomitant]
  19. ASPIRIN [Concomitant]
     Dosage: UNK UNK, QD
  20. YAZ [Suspect]
     Indication: HIRSUTISM
     Dosage: UNK
     Route: 048
     Dates: start: 20060101, end: 20091101
  21. SPIRONOLACTONE [Concomitant]
     Indication: HIRSUTISM
     Dosage: 50 MG, UNK
     Dates: start: 20060101
  22. PAXIL [Concomitant]
     Indication: THYROID DISORDER
     Dosage: UNK
     Dates: start: 20060101
  23. LORAZEPAM [Concomitant]
  24. ACIPHEX [Concomitant]
  25. YAZ [Suspect]
     Indication: PREMENSTRUAL SYNDROME
  26. PROTONIX [Concomitant]

REACTIONS (15)
  - GASTRIC DISORDER [None]
  - FEAR [None]
  - DIARRHOEA [None]
  - VOMITING [None]
  - PAIN [None]
  - HIATUS HERNIA [None]
  - GASTRITIS [None]
  - GALLBLADDER INJURY [None]
  - NAUSEA [None]
  - INJURY [None]
  - ANXIETY [None]
  - DEPRESSION [None]
  - CHOLECYSTITIS CHRONIC [None]
  - CHOLELITHIASIS [None]
  - ABDOMINAL PAIN UPPER [None]
